FAERS Safety Report 18278933 (Version 2)
Quarter: 2020Q3

REPORT INFORMATION
  Report Type: Spontaneous
  Country: FR (occurrence: FR)
  Receive Date: 20200917
  Receipt Date: 20200924
  Transmission Date: 20201103
  Serious: Yes (Other)
  Sender: FDA-Public Use
  Company Number: FR-MILLICENT HOLDINGS LTD.-MILL20200072

PATIENT
  Age: 35 Year
  Sex: Female

DRUGS (6)
  1. PREDNISONE. [Suspect]
     Active Substance: PREDNISONE
     Indication: ADRENAL INSUFFICIENCY
     Dosage: 2 MG IN THE MORNING, AND 3 MG IN THE EVENING, THEN 5 MG IN THE MORNING FOR 1 YEAR
  2. FLUDROCORTISONE [Suspect]
     Active Substance: FLUDROCORTISONE
     Indication: ADRENAL INSUFFICIENCY
     Dosage: UNKNOWN
     Route: 065
  3. HYDROCORTISONE ? [Suspect]
     Active Substance: HYDROCORTISONE
     Indication: ADRENAL INSUFFICIENCY
     Dosage: 10 MG IN THE MORNING, 5 MG AT NOON, 5 MG AT 4 P.M.
  4. OXYCODONE [Suspect]
     Active Substance: OXYCODONE
     Indication: PAIN
     Dosage: UNKNOWN
     Route: 065
  5. DEHYDROEPIANDROSTERONE [Suspect]
     Active Substance: PRASTERONE
     Indication: ADRENAL INSUFFICIENCY
     Dosage: UNKNOWN
     Route: 065
  6. FENTANYL. [Suspect]
     Active Substance: FENTANYL
     Indication: PAIN
     Dosage: 75 MG
     Route: 065

REACTIONS (7)
  - Arthralgia [Unknown]
  - Dermatitis allergic [Recovering/Resolving]
  - Drug ineffective [Unknown]
  - Asthenia [Recovering/Resolving]
  - Disturbance in attention [Unknown]
  - Ankylosing spondylitis [Unknown]
  - Weight increased [Unknown]
